FAERS Safety Report 5856777-1 (Version None)
Quarter: 2008Q3

REPORT INFORMATION
  Report Type: 
  Country: None (occurrence: None)
  Receive Date: 20080825
  Receipt Date: 20080814
  Transmission Date: 20090109
  Serious: Yes (Hospitalization)
  Sender: FDA-Public Use
  Company Number: CH-ASTRAZENECA-2008PK01825

PATIENT
  Age: 56 Year
  Sex: Female

DRUGS (9)
  1. SEROQUEL [Suspect]
     Indication: DEPRESSION
     Route: 048
     Dates: start: 20070101, end: 20080718
  2. DEROXAT [Suspect]
     Indication: DEPRESSION
     Route: 048
     Dates: end: 20080718
  3. COTENOLOL MEPHA NEO FILMTABLETTEN [Suspect]
     Indication: ESSENTIAL HYPERTENSION
     Route: 048
     Dates: start: 20080717
  4. NEXIUM [Concomitant]
     Route: 048
  5. EUTHYROX [Concomitant]
     Indication: HYPOTHYROIDISM
     Route: 048
  6. TRITTICO [Concomitant]
     Indication: DEPRESSION
     Route: 048
     Dates: start: 20070101
  7. ASPIRIN [Concomitant]
     Route: 048
  8. GLUCOPHAGE [Concomitant]
     Indication: TYPE 2 DIABETES MELLITUS
     Route: 048
  9. SIMVASTATIN MEPHA [Concomitant]
     Route: 048

REACTIONS (2)
  - ELECTROCARDIOGRAM QT INTERVAL ABNORMAL [None]
  - HYPOKALAEMIA [None]
